FAERS Safety Report 13981022 (Version 1)
Quarter: 2017Q3

REPORT INFORMATION
  Report Type: Spontaneous
  Country: US (occurrence: None)
  Receive Date: 20170915
  Receipt Date: 20170915
  Transmission Date: 20171128
  Serious: Yes (Death)
  Sender: FDA-Public Use
  Company Number: None

PATIENT
  Age: 82 Year

DRUGS (1)
  1. IBRANCE [Suspect]
     Active Substance: PALBOCICLIB
     Indication: BREAST CANCER
     Dosage: 75MG DAYS1-7, DAYS15-21 ORAL
     Route: 048
     Dates: start: 20170615, end: 20170719

REACTIONS (1)
  - Death [None]

NARRATIVE: CASE EVENT DATE: 20170915
